FAERS Safety Report 10314404 (Version 1)
Quarter: 2014Q3

REPORT INFORMATION
  Report Type: Spontaneous
  Country: JP (occurrence: JP)
  Receive Date: 20140718
  Receipt Date: 20140718
  Transmission Date: 20150326
  Serious: Yes (Other)
  Sender: FDA-Public Use
  Company Number: JP-AMGEN-JPNSP2014052316

PATIENT
  Age: 70 Year
  Sex: Male

DRUGS (1)
  1. RANMARK [Suspect]
     Active Substance: DENOSUMAB
     Indication: BONE LESION
     Dosage: 120 MG, UNK
     Route: 058

REACTIONS (2)
  - Blood calcium decreased [Not Recovered/Not Resolved]
  - Renal impairment [Not Recovered/Not Resolved]
